FAERS Safety Report 5066116-4 (Version None)
Quarter: 2006Q3

REPORT INFORMATION
  Report Type: 
  Country: None (occurrence: None)
  Receive Date: 20060725
  Receipt Date: 20060719
  Transmission Date: 20061208
  Serious: Yes (Death, Life-Threatening, Other)
  Sender: FDA-Public Use
  Company Number: 200610525BYL

PATIENT
  Age: 65 Year
  Sex: Male

DRUGS (6)
  1. CIPROFLOXACIN HCL [Suspect]
     Indication: DIARRHOEA
     Dosage: SEE IMAGE
     Route: 048
     Dates: start: 20060410
  2. CIPROFLOXACIN HCL [Suspect]
     Indication: DIARRHOEA
     Dosage: SEE IMAGE
     Route: 048
     Dates: start: 20060411
  3. CIPROFLOXACIN HCL [Suspect]
     Indication: DIARRHOEA
     Dosage: SEE IMAGE
     Route: 048
     Dates: start: 20060412
  4. INTESTINAL REGULATORS [Concomitant]
  5. THIATON [Concomitant]
  6. NAUZELIN [Concomitant]

REACTIONS (16)
  - AORTIC ANEURYSM [None]
  - ATRIOVENTRICULAR BLOCK THIRD DEGREE [None]
  - BLOOD URIC ACID INCREASED [None]
  - C-REACTIVE PROTEIN INCREASED [None]
  - CARDIAC FAILURE [None]
  - CORONARY ARTERY THROMBOSIS [None]
  - CYTOLYTIC HEPATITIS [None]
  - DISSEMINATED INTRAVASCULAR COAGULATION [None]
  - GENERAL PHYSICAL HEALTH DETERIORATION [None]
  - INJURY ASPHYXIATION [None]
  - MULTI-ORGAN FAILURE [None]
  - RENAL FAILURE [None]
  - RESPIRATORY FAILURE [None]
  - RHABDOMYOLYSIS [None]
  - VENTRICULAR HYPOKINESIA [None]
  - WHITE BLOOD CELL COUNT INCREASED [None]
